FAERS Safety Report 5470295-4 (Version None)
Quarter: 2007Q3

REPORT INFORMATION
  Report Type: 
  Country: None (occurrence: None)
  Receive Date: 20070924
  Receipt Date: 20070911
  Transmission Date: 20080115
  Serious: Yes (Other)
  Sender: FDA-Public Use
  Company Number: 2007BI019303

PATIENT
  Sex: Female

DRUGS (2)
  1. AVONEX [Suspect]
     Indication: MULTIPLE SCLEROSIS
     Dosage: IM
     Route: 030
     Dates: start: 20000301, end: 20060607
  2. AVONEX [Suspect]
     Dosage: IM
     Route: 030
     Dates: start: 20070726

REACTIONS (3)
  - DIABETES INSIPIDUS [None]
  - PAIN [None]
  - VISION BLURRED [None]
